FAERS Safety Report 5505027-4 (Version None)
Quarter: 2007Q4

REPORT INFORMATION
  Report Type: 
  Country: None (occurrence: None)
  Receive Date: 20071102
  Receipt Date: 20071030
  Transmission Date: 20080405
  Serious: Yes (Other)
  Sender: FDA-Public Use
  Company Number: US-BAYER-200713557BCC

PATIENT
  Sex: Female
  Weight: 69 kg

DRUGS (3)
  1. ALKA SELTZER [Suspect]
     Indication: DYSPEPSIA
     Route: 048
  2. HIGH BLOOD PRESSURE MEDICATION [Concomitant]
  3. CALTRATE 600 PLUS VITAMIN D [Concomitant]

REACTIONS (3)
  - BLINDNESS UNILATERAL [None]
  - DYSPEPSIA [None]
  - MACULAR HOLE [None]
